FAERS Safety Report 20625348 (Version 1)
Quarter: 2022Q1

REPORT INFORMATION
  Report Type: Spontaneous
  Country: US (occurrence: None)
  Receive Date: 20220323
  Receipt Date: 20220323
  Transmission Date: 20220423
  Serious: No
  Sender: FDA-Public Use
  Company Number: US-ROCHE-2809608

PATIENT
  Sex: Male

DRUGS (4)
  1. ERIVEDGE [Suspect]
     Active Substance: VISMODEGIB
     Indication: Basal cell carcinoma
     Dosage: TAKE 1 CAPSULE (150 MG) BY MOUTH ONCE DAILY
     Route: 048
     Dates: start: 20200901
  2. COLLAGEN [Concomitant]
     Active Substance: COLLAGEN
     Dosage: ULTRA
  3. HERBALS\SPIRULINA [Concomitant]
     Active Substance: HERBALS\SPIRULINA
  4. VITAMIN C [Concomitant]
     Active Substance: ASCORBIC ACID

REACTIONS (2)
  - Pain [Not Recovered/Not Resolved]
  - Oral pain [Not Recovered/Not Resolved]
